FAERS Safety Report 7508364-7 (Version None)
Quarter: 2011Q2

REPORT INFORMATION
  Report Type: 
  Country: None (occurrence: None)
  Receive Date: 20110527
  Receipt Date: 20110520
  Transmission Date: 20111010
  Serious: No
  Sender: FDA-Public Use
  Company Number: US-PFIZER INC-2011109689

PATIENT
  Sex: Male
  Weight: 88.4 kg

DRUGS (4)
  1. LITHIUM [Concomitant]
     Indication: BIPOLAR DISORDER
     Dosage: 900 MG, 1X/DAY
     Route: 048
  2. LEXAPRO [Concomitant]
     Indication: BIPOLAR DISORDER
     Dosage: 30 MG, 1X/DAY
     Route: 048
  3. CHANTIX [Suspect]
     Indication: SMOKING CESSATION THERAPY
     Dosage: 0.5 MG, 1X/DAY
     Route: 048
     Dates: start: 20110501
  4. TRAZODONE [Concomitant]
     Dosage: 150 MG, 1X/DAY

REACTIONS (2)
  - VOMITING [None]
  - NAUSEA [None]
